FAERS Safety Report 5726085-8 (Version None)
Quarter: 2008Q2

REPORT INFORMATION
  Report Type: 
  Country: None (occurrence: None)
  Receive Date: 20080430
  Receipt Date: 20080421
  Transmission Date: 20081010
  Serious: Yes (Death, Hospitalization, Other)
  Sender: FDA-Public Use
  Company Number: 163-20785-08040964

PATIENT
  Age: 41 Year
  Sex: Male
  Weight: 73.4827 kg

DRUGS (9)
  1. THALOMID [Suspect]
     Indication: ERYTHEMA NODOSUM LEPROSUM
     Dosage: 300 MG, 3 IN 1 D, ORAL;   100 MG, 1 IN 1 D, ORAL  3
     Route: 048
     Dates: start: 20080301, end: 20080330
  2. THALOMID [Suspect]
     Indication: ERYTHEMA NODOSUM LEPROSUM
     Dosage: 300 MG, 3 IN 1 D, ORAL;   100 MG, 1 IN 1 D, ORAL  3
     Route: 048
     Dates: start: 20080213
  3. CLOFACEMINE (CLOFAZIMINE) [Concomitant]
  4. DAPSONE [Concomitant]
  5. PREDNISONE TAB [Concomitant]
  6. FOLATE (FOLIC ACID) [Concomitant]
  7. MULTIVITAMIN [Concomitant]
  8. LASIX [Concomitant]
  9. SPIRONOLACTONE [Concomitant]

REACTIONS (2)
  - HEPATIC FAILURE [None]
  - PNEUMONIA [None]
